FAERS Safety Report 6694777-2 (Version None)
Quarter: 2010Q2

REPORT INFORMATION
  Report Type: 
  Country: None (occurrence: None)
  Receive Date: 20100423
  Receipt Date: 20100414
  Transmission Date: 20101027
  Serious: Yes (Other)
  Sender: FDA-Public Use
  Company Number: B0649151A

PATIENT
  Sex: Female

DRUGS (1)
  1. ACYCLOVIR SODIUM [Suspect]
     Indication: DRUG USE FOR UNKNOWN INDICATION
     Route: 065

REACTIONS (4)
  - ERYTHEMA [None]
  - MELAENA [None]
  - URTICARIA [None]
  - VULVITIS [None]
